FAERS Safety Report 7231889-9 (Version None)
Quarter: 2011Q1

REPORT INFORMATION
  Report Type: 
  Country: None (occurrence: None)
  Receive Date: 20110118
  Receipt Date: 20091113
  Transmission Date: 20110831
  Serious: Yes (Other)
  Sender: FDA-Public Use
  Company Number: PHHY2009NL67044

PATIENT
  Sex: Female

DRUGS (1)
  1. SANDOSTATIN LAR [Suspect]

REACTIONS (3)
  - GENERAL PHYSICAL HEALTH DETERIORATION [None]
  - INJECTION SITE PAIN [None]
  - DRUG INEFFECTIVE [None]
